FAERS Safety Report 14055796 (Version 1)
Quarter: 2017Q4

REPORT INFORMATION
  Report Type: Spontaneous
  Country: GB (occurrence: GB)
  Receive Date: 20171006
  Receipt Date: 20171006
  Transmission Date: 20180321
  Serious: Yes (Life-Threatening, Disabling, Other)
  Sender: FDA-Public Use
  Company Number: GB-AUROBINDO-AUR-APL-2017-41248

PATIENT
  Age: 56 Year
  Sex: Female
  Weight: 57 kg

DRUGS (1)
  1. DULOXETINE. [Suspect]
     Active Substance: DULOXETINE
     Indication: NEURALGIA
     Dosage: 30 MG, UNK
     Route: 048
     Dates: start: 20170823, end: 20170908

REACTIONS (8)
  - Abnormal loss of weight [Recovering/Resolving]
  - Depression suicidal [Recovering/Resolving]
  - Hypotonia [Recovering/Resolving]
  - Delusion [Recovering/Resolving]
  - Suicidal ideation [Recovering/Resolving]
  - Burning sensation [Recovering/Resolving]
  - Panic attack [Recovering/Resolving]
  - Decreased appetite [Recovering/Resolving]

NARRATIVE: CASE EVENT DATE: 20170823
